FAERS Safety Report 5770368-2 (Version None)
Quarter: 2008Q2

REPORT INFORMATION
  Report Type: 
  Country: None (occurrence: None)
  Receive Date: 20080613
  Receipt Date: 20080502
  Transmission Date: 20081010
  Serious: No
  Sender: FDA-Public Use
  Company Number: US-ABBOTT-08P-163-0450061-00

PATIENT
  Sex: Female

DRUGS (6)
  1. HUMIRA [Suspect]
     Indication: CROHN'S DISEASE
     Route: 058
     Dates: start: 20080401, end: 20080401
  2. HUMIRA [Suspect]
     Dosage: 2 WEEKS LATER
     Route: 058
     Dates: start: 20080401, end: 20080401
  3. HUMIRA [Suspect]
     Route: 058
     Dates: start: 20080401
  4. PREDNISONE TAB [Concomitant]
     Indication: CROHN'S DISEASE
     Route: 048
  5. ENTACORT ED [Concomitant]
     Indication: CROHN'S DISEASE
     Route: 048
  6. AZACOL [Concomitant]
     Indication: CROHN'S DISEASE

REACTIONS (1)
  - RASH [None]
